FAERS Safety Report 16934040 (Version 1)
Quarter: 2019Q4

REPORT INFORMATION
  Report Type: Spontaneous
  Country: US (occurrence: US)
  Receive Date: 20191018
  Receipt Date: 20191018
  Transmission Date: 20200122
  Serious: Yes (Life-Threatening, Hospitalization, Other)
  Sender: FDA-Public Use
  Company Number: US-AUROBINDO-AUR-APL-2019-066350

PATIENT
  Age: 32 Year
  Sex: Male

DRUGS (1)
  1. LOPERAMIDE HYDROCHLORIDE TABLETS USP (OTC) [Suspect]
     Active Substance: LOPERAMIDE HYDROCHLORIDE
     Indication: DRUG WITHDRAWAL SYNDROME
     Dosage: 250 DOSAGE FORM 1 TOTAL
     Route: 065

REACTIONS (10)
  - Toxicity to various agents [Unknown]
  - Bundle branch block left [Unknown]
  - Intentional overdose [Unknown]
  - Acute kidney injury [Not Recovered/Not Resolved]
  - Gastrointestinal sounds abnormal [Unknown]
  - Electrocardiogram QT prolonged [Recovering/Resolving]
  - Electrocardiogram QRS complex prolonged [Recovering/Resolving]
  - Rhabdomyolysis [Unknown]
  - Compartment syndrome [Unknown]
  - Respiratory depression [Not Recovered/Not Resolved]
